FAERS Safety Report 14554213 (Version 2)
Quarter: 2018Q2

REPORT INFORMATION
  Report Type: Spontaneous
  Country: US (occurrence: US)
  Receive Date: 20180220
  Receipt Date: 20180629
  Transmission Date: 20180711
  Serious: Yes (Other)
  Sender: FDA-Public Use
  Company Number: US-PFIZER INC-2018069126

PATIENT
  Age: 69 Year
  Sex: Male
  Weight: 133.79 kg

DRUGS (2)
  1. CABERGOLINE. [Suspect]
     Active Substance: CABERGOLINE
     Indication: PITUITARY TUMOUR
  2. CABERGOLINE. [Suspect]
     Active Substance: CABERGOLINE
     Indication: BLOOD PROLACTIN INCREASED
     Dosage: 0.25 MG, 2X/WEEK, (1/2 TABLET TWICE A WEEK)
     Dates: start: 201801

REACTIONS (1)
  - No adverse event [Unknown]
